FAERS Safety Report 8549162-5 (Version None)
Quarter: 2012Q3

REPORT INFORMATION
  Report Type: 
  Country: None (occurrence: None)
  Receive Date: 20120730
  Receipt Date: 20120725
  Transmission Date: 20120928
  Serious: Yes (Other)
  Sender: FDA-Public Use
  Company Number: US-PFIZER INC-2012180481

PATIENT

DRUGS (1)
  1. LYRICA [Suspect]
     Dosage: UNK

REACTIONS (4)
  - FIBROMYALGIA [None]
  - ROAD TRAFFIC ACCIDENT [None]
  - SYSTEMIC LUPUS ERYTHEMATOSUS [None]
  - HERPES ZOSTER [None]
